FAERS Safety Report 20861856 (Version 1)
Quarter: 2022Q2

REPORT INFORMATION
  Report Type: Spontaneous
  Country: AU (occurrence: AU)
  Receive Date: 20220523
  Receipt Date: 20220523
  Transmission Date: 20220721
  Serious: No
  Sender: FDA-Public Use
  Company Number: AU-GLAXOSMITHKLINE-AU2022APC080702

PATIENT

DRUGS (1)
  1. SOTROVIMAB [Suspect]
     Active Substance: SOTROVIMAB
     Indication: COVID-19
     Dosage: 500 ML, Z, SINGLE
     Route: 042

REACTIONS (1)
  - Dermatitis allergic [Unknown]
